FAERS Safety Report 7330253-1 (Version None)
Quarter: 2011Q1

REPORT INFORMATION
  Report Type: 
  Country: None (occurrence: None)
  Receive Date: 20110303
  Receipt Date: 20110224
  Transmission Date: 20110831
  Serious: Yes (Hospitalization)
  Sender: FDA-Public Use
  Company Number: FR-BRISTOL-MYERS SQUIBB COMPANY-15562200

PATIENT
  Age: 34 Year
  Sex: Male

DRUGS (4)
  1. AZITHROMYCIN [Interacting]
     Indication: BRONCHIOLITIS
  2. PRAVASTATIN [Suspect]
     Indication: CORONARY ARTERY DISEASE
  3. COLCHICINE [Interacting]
     Indication: GOUT
     Dosage: 1MG BID FOR 2 AND 3RAY; 1MG/D FOR 6DAYS
     Dates: start: 20091020
  4. CICLOSPORIN [Interacting]

REACTIONS (3)
  - DRUG INTERACTION [None]
  - RHABDOMYOLYSIS [None]
  - MULTI-ORGAN FAILURE [None]
